FAERS Safety Report 21717933 (Version 1)
Quarter: 2022Q4

REPORT INFORMATION
  Report Type: Report from Study
  Country: US (occurrence: US)
  Receive Date: 20221212
  Receipt Date: 20221212
  Transmission Date: 20230113
  Serious: No
  Sender: FDA-Public Use
  Company Number: US-Global Blood Therapeutics Inc-US-GBT-21-03521

PATIENT
  Sex: Female
  Weight: 78.92 kg

DRUGS (5)
  1. OXBRYTA [Suspect]
     Active Substance: VOXELOTOR
     Indication: Sickle cell disease
     Route: 048
     Dates: start: 20200901, end: 20210901
  2. Prenatal Multi [Concomitant]
     Indication: Sickle cell disease
     Dosage: ONCE, 27-800, MG
     Route: 048
     Dates: start: 20210901, end: 20210917
  3. FOLVITE [Concomitant]
     Active Substance: FOLIC ACID
     Indication: Sickle cell disease
     Route: 048
     Dates: start: 20210901, end: 20211001
  4. VITAMIN D3 [Concomitant]
     Active Substance: CHOLECALCIFEROL
     Indication: Sickle cell disease
     Route: 048
     Dates: start: 20201014, end: 20210930
  5. ASMANEX [Concomitant]
     Active Substance: MOMETASONE FUROATE
     Indication: Sickle cell disease
     Dosage: 220 MCG
     Route: 050
     Dates: start: 20201117, end: 20210930

REACTIONS (1)
  - Exposure during pregnancy [Unknown]
